FAERS Safety Report 4700853-3 (Version None)
Quarter: 2005Q2

REPORT INFORMATION
  Report Type: 
  Country: None (occurrence: None)
  Receive Date: 20050114
  Receipt Date: 20050114
  Transmission Date: 20051028
  Serious: No
  Sender: FDA-Public Use
  Company Number: None

PATIENT
  Sex: Male
  Weight: 77.1115 kg

DRUGS (1)
  1. DILANTIN [Suspect]
     Dosage: TWO BID ORAL
     Route: 048

REACTIONS (1)
  - EPILEPSY [None]
